FAERS Safety Report 15164815 (Version 1)
Quarter: 2018Q3

REPORT INFORMATION
  Report Type: Spontaneous
  Country: US (occurrence: US)
  Receive Date: 20180719
  Receipt Date: 20180719
  Transmission Date: 20181010
  Serious: No
  Sender: FDA-Public Use
  Company Number: US-BIOGEN-2018BI00609649

PATIENT
  Sex: Male

DRUGS (1)
  1. TECFIDERA [Suspect]
     Active Substance: DIMETHYL FUMARATE
     Indication: MULTIPLE SCLEROSIS
     Route: 048
     Dates: start: 20131023, end: 20180131

REACTIONS (5)
  - Time perception altered [Unknown]
  - Visual acuity reduced [Not Recovered/Not Resolved]
  - Flushing [Recovered/Resolved]
  - Skin irritation [Recovered/Resolved]
  - Hot flush [Recovered/Resolved]
